FAERS Safety Report 8369534-1 (Version None)
Quarter: 2012Q2

REPORT INFORMATION
  Report Type: 
  Country: None (occurrence: None)
  Receive Date: 20120518
  Receipt Date: 20120511
  Transmission Date: 20120825
  Serious: Yes (Other)
  Sender: FDA-Public Use
  Company Number: RU-JNJFOC-20120511938

PATIENT
  Sex: Male

DRUGS (1)
  1. VISINE CLASSSIC [Suspect]
     Indication: ASTHENOPIA
     Route: 047
     Dates: start: 20120501

REACTIONS (8)
  - EYE IRRITATION [None]
  - ASTHENOPIA [None]
  - VISION BLURRED [None]
  - BURNING SENSATION [None]
  - LACRIMATION INCREASED [None]
  - OFF LABEL USE [None]
  - DIZZINESS [None]
  - HYPERSENSITIVITY [None]
